FAERS Safety Report 9064671 (Version 4)
Quarter: 2013Q2

REPORT INFORMATION
  Report Type: Spontaneous
  Country: US (occurrence: US)
  Receive Date: 20130128
  Receipt Date: 20130415
  Transmission Date: 20140414
  Serious: Yes (Other)
  Sender: FDA-Public Use
  Company Number: PHEH2013US002136

PATIENT
  Sex: Female

DRUGS (1)
  1. TOBI [Suspect]
     Indication: BRONCHIECTASIS
     Dosage: BID
     Dates: start: 20121126

REACTIONS (4)
  - Aphonia [Unknown]
  - Sputum increased [Unknown]
  - Bronchial secretion retention [Unknown]
  - Dysphonia [Unknown]
